FAERS Safety Report 7244335-6 (Version None)
Quarter: 2011Q1

REPORT INFORMATION
  Report Type: 
  Country: None (occurrence: None)
  Receive Date: 20110125
  Receipt Date: 20110118
  Transmission Date: 20110831
  Serious: Yes (Death)
  Sender: FDA-Public Use
  Company Number: US-GILEAD-2010-0034752

PATIENT
  Sex: Male

DRUGS (2)
  1. LETAIRIS [Suspect]
     Route: 048
     Dates: start: 20090801, end: 20100701
  2. LETAIRIS [Suspect]
     Indication: PULMONARY ARTERIAL HYPERTENSION
     Route: 048
     Dates: start: 20100701, end: 20101209

REACTIONS (1)
  - ACUTE MYOCARDIAL INFARCTION [None]
